FAERS Safety Report 7754142-3 (Version None)
Quarter: 2011Q3

REPORT INFORMATION
  Report Type: 
  Country: None (occurrence: None)
  Receive Date: 20110915
  Receipt Date: 20110902
  Transmission Date: 20111222
  Serious: No
  Sender: FDA-Public Use
  Company Number: CA-ELI_LILLY_AND_COMPANY-CA201109000645

PATIENT
  Sex: Male

DRUGS (8)
  1. ZYPREXA [Suspect]
     Dosage: 7.5 MG, QD
  2. LORAZEPAM [Concomitant]
  3. ZYPREXA [Suspect]
     Indication: SCHIZOPHRENIA
     Dosage: 2.5 MG, EACH MORNING
     Dates: start: 19990526
  4. ZYPREXA [Suspect]
     Dosage: 2.5 MG, BID
  5. RISPERIDONE [Concomitant]
  6. PAXIL [Concomitant]
  7. CLOZAPINE [Concomitant]
  8. ZYPREXA [Suspect]
     Dosage: 10 MG, EACH EVENING

REACTIONS (6)
  - PLATELET COUNT DECREASED [None]
  - ALANINE AMINOTRANSFERASE INCREASED [None]
  - HYPERCHOLESTEROLAEMIA [None]
  - HYPERLIPIDAEMIA [None]
  - HYPERGLYCAEMIA [None]
  - TYPE 2 DIABETES MELLITUS [None]
